FAERS Safety Report 17328190 (Version 1)
Quarter: 2020Q1

REPORT INFORMATION
  Report Type: Report from Study
  Country: US (occurrence: US)
  Receive Date: 20200127
  Receipt Date: 20200127
  Transmission Date: 20200409
  Serious: Yes (Hospitalization, Other)
  Sender: FDA-Public Use
  Company Number: US-BRISTOL-MYERS SQUIBB COMPANY-BMS-2020-005703

PATIENT
  Age: 65 Year
  Sex: Female

DRUGS (3)
  1. NIVOLUMAB [Suspect]
     Active Substance: NIVOLUMAB
     Indication: MYELODYSPLASTIC SYNDROME
     Dosage: 3 MILLIGRAM/KILOGRAM
     Route: 042
     Dates: end: 20200117
  2. 5-AZACYTIDINE [Suspect]
     Active Substance: AZACITIDINE
     Indication: MYELODYSPLASTIC SYNDROME
     Route: 065
  3. IPILIMUMAB [Suspect]
     Active Substance: IPILIMUMAB
     Indication: MYELODYSPLASTIC SYNDROME
     Dosage: 1 MILLIGRAM/KILOGRAM
     Route: 042
     Dates: end: 20200117

REACTIONS (3)
  - Hypotension [Unknown]
  - Sepsis [Unknown]
  - Pneumonia [Unknown]

NARRATIVE: CASE EVENT DATE: 20200119
